FAERS Safety Report 11536180 (Version 1)
Quarter: 2015Q3

REPORT INFORMATION
  Report Type: Spontaneous
  Country: None (occurrence: None)
  Receive Date: 20150921
  Receipt Date: 20150921
  Transmission Date: 20151125
  Serious: Yes (Other)
  Sender: FDA-Public Use
  Company Number: None

PATIENT
  Age: 43 Year
  Sex: Female
  Weight: 98.3 kg

DRUGS (1)
  1. LANTUS SOLOSTAR [Suspect]
     Active Substance: INSULIN GLARGINE
     Dosage: 38?QHS/BEDTIME?SUBCUTANEOUS
     Route: 058
     Dates: start: 20150807, end: 20150811

REACTIONS (4)
  - Syringe issue [None]
  - Blood glucose increased [None]
  - Device malfunction [None]
  - Device issue [None]

NARRATIVE: CASE EVENT DATE: 20150811
